FAERS Safety Report 10178626 (Version 2)
Quarter: 2014Q3

REPORT INFORMATION
  Report Type: Report from Study
  Country: BE (occurrence: BE)
  Receive Date: 20140519
  Receipt Date: 20140902
  Transmission Date: 20150326
  Serious: Yes (Death)
  Sender: FDA-Public Use
  Company Number: BE-ROCHE-1403138

PATIENT
  Sex: Female

DRUGS (1)
  1. TRASTUZUMAB EMTANSINE [Suspect]
     Active Substance: ADO-TRASTUZUMAB EMTANSINE
     Indication: BREAST CANCER METASTATIC
     Route: 065
     Dates: start: 20130419, end: 20131028

REACTIONS (5)
  - Nausea [Unknown]
  - Dizziness [Unknown]
  - Dysgeusia [Unknown]
  - Disease progression [Fatal]
  - Headache [Unknown]
